FAERS Safety Report 9491372 (Version 2)
Quarter: 2013Q3

REPORT INFORMATION
  Report Type: Spontaneous
  Country: FR (occurrence: FR)
  Receive Date: 20130830
  Receipt Date: 20130830
  Transmission Date: 20140515
  Serious: Yes (Hospitalization, Other)
  Sender: FDA-Public Use
  Company Number: FR-PFIZER INC-2013240077

PATIENT
  Age: 65 Year
  Sex: Female
  Weight: 88 kg

DRUGS (12)
  1. RIFAMPICIN [Suspect]
     Indication: ANTIBIOTIC PROPHYLAXIS
     Dosage: 900 MG, 1X/DAY
     Route: 048
  2. CICLOSPORIN [Interacting]
     Dosage: 100 MG, 1X/DAY
     Route: 048
  3. CICLOSPORIN [Interacting]
     Dosage: 800 MG/DAY
     Route: 048
  4. CICLOSPORIN [Interacting]
     Dosage: 200 MG/DAY
     Route: 042
  5. CICLOSPORIN [Interacting]
     Dosage: 200 MG/DAY
     Route: 048
  6. FLUINDIONE [Interacting]
     Dosage: 20 MG/DAY
  7. FLUINDIONE [Interacting]
     Dosage: 15 MG/DAY
  8. FLUINDIONE [Interacting]
     Dosage: 25 MG/DAY
  9. HEPARIN [Suspect]
     Indication: ANTICOAGULANT THERAPY
     Dosage: UNK
  10. ISONIAZID [Concomitant]
     Indication: ANTIBIOTIC PROPHYLAXIS
     Dosage: UNK
  11. ETHAMBUTOL [Concomitant]
     Indication: ANTIBIOTIC PROPHYLAXIS
     Dosage: UNK
  12. PYRAZINAMIDE [Concomitant]
     Indication: ANTIBIOTIC PROPHYLAXIS
     Dosage: UNK

REACTIONS (3)
  - Haemorrhage [Recovered/Resolved]
  - Drug level decreased [Recovered/Resolved]
  - Drug interaction [Unknown]
